FAERS Safety Report 9399263 (Version 1)
Quarter: 2013Q3

REPORT INFORMATION
  Report Type: Spontaneous
  Country: US (occurrence: None)
  Receive Date: 20130709
  Receipt Date: 20130709
  Transmission Date: 20140515
  Serious: Yes (Other)
  Sender: FDA-Public Use
  Company Number: AUR-APL-2013-05774

PATIENT
  Sex: Female

DRUGS (4)
  1. OXYCODONE (OXYCODONE) [Suspect]
     Indication: PAIN
  2. LYRICA (PREGABALIN) [Suspect]
     Indication: PAIN
  3. TRAMADOL HCL [Suspect]
     Indication: PAIN
  4. CYMBALTA (DULOXETINE HYDROCHLORIDE) [Suspect]
     Indication: PAIN

REACTIONS (2)
  - Overdose [None]
  - Dependence [None]
